FAERS Safety Report 6883530-2 (Version None)
Quarter: 2010Q3

REPORT INFORMATION
  Report Type: 
  Country: None (occurrence: None)
  Receive Date: 20100708
  Receipt Date: 20100218
  Transmission Date: 20110219
  Serious: Yes (Other)
  Sender: FDA-Public Use
  Company Number: 2010021577

PATIENT
  Sex: Male

DRUGS (1)
  1. CHANTIX [Suspect]

REACTIONS (6)
  - ANXIETY [None]
  - DECREASED APPETITE [None]
  - FEELING HOT [None]
  - HYPERSENSITIVITY [None]
  - PANIC ATTACK [None]
  - SLEEP DISORDER [None]
